FAERS Safety Report 4974479-0 (Version None)
Quarter: 2006Q1

REPORT INFORMATION
  Report Type: 
  Country: None (occurrence: None)
  Receive Date: 20060216
  Receipt Date: 20051216
  Transmission Date: 20060701
  Serious: No
  Sender: FDA-Public Use
  Company Number: TPA2005A01686

PATIENT
  Age: 40 Year
  Sex: Male
  Weight: 74.8435 kg

DRUGS (6)
  1. ROZEREM [Suspect]
     Indication: INSOMNIA
     Dosage: SEE IMAGE
     Route: 048
     Dates: start: 20051202, end: 20051214
  2. ROZEREM [Suspect]
     Indication: INSOMNIA
     Dosage: SEE IMAGE
     Route: 048
     Dates: start: 20051214
  3. GEODONE (ZIPRASIDONE HYDROCHLORIDE) [Concomitant]
  4. PROZAC [Concomitant]
  5. NEURONTIN [Concomitant]
  6. STRATTERA [Concomitant]

REACTIONS (2)
  - OVERDOSE [None]
  - THERAPEUTIC RESPONSE DECREASED [None]
